FAERS Safety Report 7943371-1 (Version None)
Quarter: 2011Q4

REPORT INFORMATION
  Report Type: 
  Country: None (occurrence: None)
  Receive Date: 20111128
  Receipt Date: 20111118
  Transmission Date: 20120403
  Serious: Yes (Hospitalization, Other)
  Sender: FDA-Public Use
  Company Number: US-BAYER-201037214NA

PATIENT
  Age: 18 Year
  Sex: Female
  Weight: 113 kg

DRUGS (3)
  1. DROSPIRENONE AND ETHINYL ESTRADIOL [Suspect]
     Dosage: UNK
     Route: 048
     Dates: start: 20090701, end: 20100202
  2. YAZ [Suspect]
  3. FLUCONAZOLE [Concomitant]
     Dosage: UNK
     Dates: start: 20090707

REACTIONS (11)
  - DIARRHOEA [None]
  - SCAR [None]
  - ANXIETY [None]
  - ABDOMINAL DISTENSION [None]
  - FLATULENCE [None]
  - BILE DUCT STONE [None]
  - CONSTIPATION [None]
  - CHOLECYSTECTOMY [None]
  - DYSPEPSIA [None]
  - CHOLECYSTITIS CHRONIC [None]
  - DEPRESSION [None]
